FAERS Safety Report 7728091-0 (Version None)
Quarter: 2011Q3

REPORT INFORMATION
  Report Type: 
  Country: None (occurrence: None)
  Receive Date: 20110905
  Receipt Date: 20110825
  Transmission Date: 20111222
  Serious: Yes (Hospitalization)
  Sender: FDA-Public Use
  Company Number: JP-BRISTOL-MYERS SQUIBB COMPANY-16023681

PATIENT
  Age: 1 Day
  Sex: Female
  Weight: 3 kg

DRUGS (4)
  1. ZOLPIDEM [Concomitant]
     Dosage: MYSLEE: FORMULATION: TABS.
  2. ABILIFY [Suspect]
     Route: 064
     Dates: start: 20110818, end: 20110822
  3. LEXOTAN [Suspect]
     Dosage: LEXOTAN: PRN. FORMULATION: TABLET.DURATION: UNK AND 18-AUG-2011 TO 22-AUG-2011
     Route: 064
  4. LENDORMIN [Concomitant]
     Dosage: LENDORMIN: FORMULATION: TABS

REACTIONS (1)
  - DRUG WITHDRAWAL SYNDROME NEONATAL [None]
